FAERS Safety Report 25860663 (Version 1)
Quarter: 2025Q3

REPORT INFORMATION
  Report Type: Spontaneous
  Country: US (occurrence: None)
  Receive Date: 20250926
  Receipt Date: 20250926
  Transmission Date: 20251021
  Serious: Yes (Hospitalization)
  Sender: FDA-CTU
  Company Number: None

PATIENT
  Sex: Male

DRUGS (2)
  1. VANCOMYCIN HYDROCHLORIDE [Suspect]
     Active Substance: VANCOMYCIN HYDROCHLORIDE
     Indication: Cystic fibrosis
     Dosage: 500 MG TWICE A DAY RESPIRATHORY(INHALATION)
     Route: 055
     Dates: start: 20230331
  2. STERILE WATER SDV [Concomitant]

REACTIONS (1)
  - Osteomyelitis [None]
